FAERS Safety Report 24144972 (Version 1)
Quarter: 2024Q3

REPORT INFORMATION
  Report Type: Report from Study
  Country: CA (occurrence: CA)
  Receive Date: 20240729
  Receipt Date: 20240729
  Transmission Date: 20241016
  Serious: Yes (Other)
  Sender: Alvotech
  Company Number: CA-JAMP PHARMA CORPORATION-2022-JAM-CA-00612

PATIENT
  Sex: Male

DRUGS (3)
  1. SIMLANDI [Suspect]
     Active Substance: ADALIMUMAB-RYVK
     Indication: Colitis ulcerative
     Dosage: 40 MG, WEEKLY
     Route: 058
  2. SIMLANDI [Suspect]
     Active Substance: ADALIMUMAB-RYVK
     Indication: Colitis ulcerative
     Dosage: PRE-FILLED SYRINGE, UNK MG
     Route: 058
     Dates: start: 20220720
  3. SIMLANDI [Suspect]
     Active Substance: ADALIMUMAB-RYVK
     Indication: Colitis ulcerative
     Dosage: PRE-FILLED SYRINGE, 80MG, WEEKLY
     Route: 058

REACTIONS (6)
  - Colitis ulcerative [Unknown]
  - Gastrointestinal inflammation [Unknown]
  - Contusion [Unknown]
  - Back pain [Unknown]
  - Off label use [Unknown]
  - Product dose omission issue [Unknown]
